FAERS Safety Report 19628873 (Version 2)
Quarter: 2024Q2

REPORT INFORMATION
  Report Type: Report from Study
  Country: US (occurrence: US)
  Receive Date: 20210728
  Receipt Date: 20240626
  Transmission Date: 20240716
  Serious: No
  Sender: FDA-Public Use
  Company Number: US-KYOWAKIRIN-2021BKK012935

PATIENT

DRUGS (2)
  1. MOGAMULIZUMAB [Suspect]
     Active Substance: MOGAMULIZUMAB
     Indication: Cutaneous T-cell lymphoma
     Dosage: 60 MG, ONCE EVERY OTHER WEEK
     Route: 042
     Dates: start: 20190705
  2. MOGAMULIZUMAB [Suspect]
     Active Substance: MOGAMULIZUMAB
     Dosage: UNK
     Route: 042

REACTIONS (7)
  - Hand fracture [Unknown]
  - Pain [Unknown]
  - Pain in extremity [Unknown]
  - Myalgia [Unknown]
  - Sinusitis [Unknown]
  - Migraine [Unknown]
  - Hypotension [Unknown]

NARRATIVE: CASE EVENT DATE: 20240601
